FAERS Safety Report 25485425 (Version 1)
Quarter: 2025Q2

REPORT INFORMATION
  Report Type: Report from Study
  Country: US (occurrence: US)
  Receive Date: 20250626
  Receipt Date: 20250626
  Transmission Date: 20250717
  Serious: Yes (Other)
  Sender: PFIZER
  Company Number: US-PFIZER INC-PV202500074986

PATIENT
  Age: 82 Year
  Sex: Male
  Weight: 121.09 kg

DRUGS (14)
  1. PAXLOVID [Suspect]
     Active Substance: NIRMATRELVIR\RITONAVIR
     Indication: COVID-19
     Dates: start: 20241215
  2. BRUKINSA [Suspect]
     Active Substance: ZANUBRUTINIB
     Indication: Waldenstrom^s macroglobulinaemia
     Dosage: 160 MG, 2X/DAY
     Route: 048
     Dates: start: 20230225
  3. BRUKINSA [Suspect]
     Active Substance: ZANUBRUTINIB
     Dosage: 160 MG, 2X/DAY
     Route: 048
     Dates: start: 20230225
  4. BRUKINSA [Suspect]
     Active Substance: ZANUBRUTINIB
     Dosage: 160 MG, 2X/DAY
     Route: 048
     Dates: start: 20230225
  5. BRUKINSA [Suspect]
     Active Substance: ZANUBRUTINIB
     Dosage: 160 MG, 2X/DAY
     Route: 048
     Dates: start: 20230225
  6. BRUKINSA [Suspect]
     Active Substance: ZANUBRUTINIB
     Dosage: 160 MG, 2X/DAY
     Route: 048
     Dates: start: 20230225
  7. BRUKINSA [Suspect]
     Active Substance: ZANUBRUTINIB
     Dosage: 160 MG, 2X/DAY
     Route: 048
     Dates: start: 20230225
  8. BRUKINSA [Suspect]
     Active Substance: ZANUBRUTINIB
     Dosage: 160 MG, 2X/DAY
     Route: 048
     Dates: start: 20230225
  9. BRUKINSA [Suspect]
     Active Substance: ZANUBRUTINIB
     Dosage: 160 MG, 2X/DAY
     Route: 048
     Dates: start: 20230225
  10. BRUKINSA [Suspect]
     Active Substance: ZANUBRUTINIB
     Dosage: 160 MG, 2X/DAY
     Route: 048
     Dates: start: 20230225, end: 202412
  11. BRUKINSA [Suspect]
     Active Substance: ZANUBRUTINIB
     Dosage: 160 MG, 2X/DAY
     Route: 048
     Dates: start: 20230225, end: 202412
  12. BRUKINSA [Suspect]
     Active Substance: ZANUBRUTINIB
     Dosage: 160 MG, 2X/DAY
     Route: 048
  13. BRUKINSA [Suspect]
     Active Substance: ZANUBRUTINIB
     Dosage: 160 MG, 2X/DAY
     Route: 048
     Dates: start: 20230225
  14. BRUKINSA [Suspect]
     Active Substance: ZANUBRUTINIB
     Dosage: FOUR CAPSULES AT ONCE, DAILY

REACTIONS (16)
  - Knee arthroplasty [Unknown]
  - Musculoskeletal stiffness [Unknown]
  - Neoplasm skin [Unknown]
  - Contusion [Recovered/Resolved]
  - Depression [Unknown]
  - Diarrhoea [Unknown]
  - Haemorrhage subcutaneous [Unknown]
  - Food poisoning [Unknown]
  - Back disorder [Unknown]
  - Arthralgia [Unknown]
  - COVID-19 [Unknown]
  - Pollakiuria [Unknown]
  - Back pain [Unknown]
  - Oedema peripheral [Unknown]
  - Product dose omission issue [Unknown]
  - Product dose omission in error [Unknown]

NARRATIVE: CASE EVENT DATE: 20230303
